FAERS Safety Report 6046346-5 (Version None)
Quarter: 2009Q1

REPORT INFORMATION
  Report Type: 
  Country: None (occurrence: None)
  Receive Date: 20090121
  Receipt Date: 20090121
  Transmission Date: 20090719
  Serious: Yes (Other)
  Sender: FDA-Public Use
  Company Number: None

PATIENT
  Age: 33 Year
  Sex: Female
  Weight: 58.9676 kg

DRUGS (1)
  1. PENICILLIN V [Suspect]
     Indication: TOOTH INFECTION
     Dosage: 500 MG 4 X PD PO
     Route: 048
     Dates: start: 20090114, end: 20090117

REACTIONS (2)
  - LARYNX IRRITATION [None]
  - VULVOVAGINAL DISCOMFORT [None]
